FAERS Safety Report 6048307-9 (Version None)
Quarter: 2009Q1

REPORT INFORMATION
  Report Type: 
  Country: None (occurrence: None)
  Receive Date: 20090121
  Receipt Date: 20090121
  Transmission Date: 20090719
  Serious: No
  Sender: FDA-Public Use
  Company Number: None

PATIENT
  Age: 42 Year
  Sex: Female
  Weight: 58.9676 kg

DRUGS (2)
  1. BUPROPION HCL [Suspect]
     Indication: DEPRESSION
     Dosage: 1 X DAILY
     Dates: start: 20090112, end: 20090120
  2. BUPROPION HCL [Suspect]
     Indication: SMOKING CESSATION THERAPY
     Dosage: 1 X DAILY
     Dates: start: 20090112, end: 20090120

REACTIONS (6)
  - GASTROOESOPHAGEAL REFLUX DISEASE [None]
  - HEADACHE [None]
  - MUSCLE DISORDER [None]
  - MYALGIA [None]
  - PRODUCT QUALITY ISSUE [None]
  - TINNITUS [None]
